FAERS Safety Report 20059153 (Version 2)
Quarter: 2021Q4

REPORT INFORMATION
  Report Type: Report from Study
  Country: KR (occurrence: None)
  Receive Date: 20211111
  Receipt Date: 20211214
  Transmission Date: 20220303
  Serious: Yes (Hospitalization)
  Sender: FDA-Public Use
  Company Number: KR-ROCHE-2945812

PATIENT
  Age: 72 Year
  Sex: Male
  Weight: 63 kg

DRUGS (21)
  1. TIRAGOLUMAB [Suspect]
     Active Substance: TIRAGOLUMAB
     Indication: Lung adenocarcinoma
     Dosage: ON 06/OCT/2021 HE TOOK MOST RECENT DOSE PRIOR TO SERIOUS ADVERSE EVENT
     Route: 042
     Dates: start: 20210510
  2. ATEZOLIZUMAB [Suspect]
     Active Substance: ATEZOLIZUMAB
     Indication: Lung adenocarcinoma
     Dosage: ON 06/OCT/2021 HE TOOK MOST RECENT DOSE PRIOR TO SERIOUS ADVERSE EVENT.
     Route: 041
     Dates: start: 20210510
  3. MEQUITAZINE [Concomitant]
     Active Substance: MEQUITAZINE
     Indication: Pruritus
     Route: 048
     Dates: start: 20211006
  4. TWOLION [Concomitant]
     Indication: Pruritus
     Route: 048
     Dates: start: 20211006
  5. LACTICARE [Concomitant]
     Indication: Pruritus
     Route: 062
     Dates: start: 20211006
  6. FLOMOX (SOUTH KOREA) [Concomitant]
     Indication: Myalgia
     Route: 048
     Dates: start: 20211015
  7. HARNAL [Concomitant]
     Active Substance: TAMSULOSIN HYDROCHLORIDE
     Indication: Dysuria
     Route: 048
     Dates: start: 20211015, end: 20211022
  8. HARNAL [Concomitant]
     Active Substance: TAMSULOSIN HYDROCHLORIDE
     Route: 048
     Dates: start: 20211023
  9. ACECLOFENAC [Concomitant]
     Active Substance: ACECLOFENAC
     Indication: Myalgia
     Route: 048
     Dates: start: 20211015
  10. MULEX [Concomitant]
     Indication: Myalgia
     Route: 048
     Dates: start: 20211015
  11. GASTER (SOUTH KOREA) [Concomitant]
     Route: 048
     Dates: start: 20211015
  12. GASTER (SOUTH KOREA) [Concomitant]
     Route: 048
     Dates: start: 20211105
  13. MORPHINE SULFATE [Concomitant]
     Active Substance: MORPHINE SULFATE
     Indication: Myalgia
     Route: 042
     Dates: start: 20211025, end: 20211025
  14. PREFEPHEN [Concomitant]
     Indication: Myalgia
     Route: 042
     Dates: start: 20211025, end: 20211025
  15. PENIRAMIN [Concomitant]
     Indication: Pruritus
     Route: 042
     Dates: start: 20211025, end: 20211025
  16. MEGACE [Concomitant]
     Active Substance: MEGESTROL ACETATE
     Indication: Decreased appetite
     Route: 048
     Dates: start: 20211025
  17. ALBUMIN HUMAN [Concomitant]
     Active Substance: ALBUMIN HUMAN
     Route: 042
     Dates: start: 20211025, end: 20211025
  18. ACETAMINOPHEN [Concomitant]
     Active Substance: ACETAMINOPHEN
     Indication: Pyrexia
     Route: 042
     Dates: start: 20211026, end: 20211028
  19. TRIAXONE [Concomitant]
     Indication: Pyrexia
     Route: 042
     Dates: start: 20211026, end: 20211102
  20. PANTOPRAZOLE SODIUM [Concomitant]
     Active Substance: PANTOPRAZOLE SODIUM
     Route: 042
     Dates: start: 20211029, end: 20211031
  21. VAHELVA RESPIMAT [Concomitant]
     Dosage: 2 PUFF
     Route: 055
     Dates: start: 20210331

REACTIONS (1)
  - Muscular weakness [Recovered/Resolved]

NARRATIVE: CASE EVENT DATE: 20211022
